FAERS Safety Report 9269384 (Version 2)
Quarter: 2013Q2

REPORT INFORMATION
  Report Type: Spontaneous
  Country: US (occurrence: US)
  Receive Date: 20130503
  Receipt Date: 20130531
  Transmission Date: 20140414
  Serious: Yes (Hospitalization)
  Sender: FDA-Public Use
  Company Number: US-TEVA-401534USA

PATIENT
  Age: 66 Year
  Sex: Male

DRUGS (3)
  1. COPAXONE [Suspect]
     Indication: MULTIPLE SCLEROSIS
     Route: 058
     Dates: start: 20121216, end: 20130319
  2. AMPYRA [Suspect]
     Dosage: TWICE A DAY
     Dates: start: 201301
  3. AUBAGIO [Concomitant]

REACTIONS (6)
  - Anaphylactic shock [Unknown]
  - Tremor [Unknown]
  - Hypoaesthesia [Unknown]
  - Eye disorder [Unknown]
  - Dyspnoea [Unknown]
  - Muscle spasms [Unknown]
